FAERS Safety Report 7619713-3 (Version None)
Quarter: 2011Q3

REPORT INFORMATION
  Report Type: 
  Country: None (occurrence: None)
  Receive Date: 20110719
  Receipt Date: 20110708
  Transmission Date: 20111222
  Serious: Yes (Other)
  Sender: FDA-Public Use
  Company Number: US-ELI_LILLY_AND_COMPANY-US201011007268

PATIENT
  Age: 63 Year
  Sex: Female

DRUGS (1)
  1. FORTEO [Suspect]
     Indication: OSTEOPOROSIS

REACTIONS (10)
  - GINGIVAL PAIN [None]
  - GINGIVAL BLISTER [None]
  - BONE FORMATION INCREASED [None]
  - GINGIVAL INJURY [None]
  - INCISION SITE COMPLICATION [None]
  - FEMUR FRACTURE [None]
  - GINGIVAL RECESSION [None]
  - JAW OPERATION [None]
  - VARICOPHLEBITIS [None]
  - VEIN PAIN [None]
